FAERS Safety Report 9943444 (Version 2)
Quarter: 2014Q1

REPORT INFORMATION
  Report Type: Report from Study
  Country: US (occurrence: US)
  Receive Date: 20140303
  Receipt Date: 20140303
  Transmission Date: 20141002
  Serious: No
  Sender: FDA-Public Use
  Company Number: US-ABBVIE-12P-163-1026370-00

PATIENT
  Age: 47 Year
  Sex: Male
  Weight: 85 kg

DRUGS (12)
  1. HUMIRA [Suspect]
     Indication: CROHN^S DISEASE
     Dosage: LOADING DOSE
     Dates: start: 20121204, end: 20121204
  2. HUMIRA [Suspect]
     Dosage: LOADING DOSE
     Dates: start: 20121218, end: 20121218
  3. HUMIRA [Suspect]
  4. ABILIFY [Concomitant]
     Indication: DEPRESSION
     Dosage: ONE HALF TAB DAILY
  5. EFFEXOR [Concomitant]
     Indication: DEPRESSION
  6. EFFEXOR [Concomitant]
     Indication: ANXIETY
  7. MULTIVITAMIN [Concomitant]
     Indication: SUPPLEMENTATION THERAPY
  8. VICODIN [Concomitant]
     Indication: PAIN
  9. FINASTERIDE [Concomitant]
     Indication: BENIGN PROSTATIC HYPERPLASIA
  10. TRAMADOL [Concomitant]
     Indication: BACK PAIN
  11. OXYCODONE [Concomitant]
     Dosage: 5/325 MG ALTERNATE THREE EACH DAY
  12. XANAX [Concomitant]
     Indication: ANXIETY

REACTIONS (5)
  - Confusional state [Not Recovered/Not Resolved]
  - Headache [Not Recovered/Not Resolved]
  - Aphasia [Recovered/Resolved]
  - Dysstasia [Recovered/Resolved]
  - Fall [Recovered/Resolved]
